FAERS Safety Report 13945937 (Version 1)
Quarter: 2017Q3

REPORT INFORMATION
  Report Type: Spontaneous
  Country: DK (occurrence: DK)
  Receive Date: 20170907
  Receipt Date: 20170907
  Transmission Date: 20171128
  Serious: Yes (Other)
  Sender: FDA-Public Use
  Company Number: DK-TEVA-802329ACC

PATIENT
  Sex: Female

DRUGS (4)
  1. NORITREN [Concomitant]
     Active Substance: NORTRIPTYLINE HYDROCHLORIDE
  2. ALPRAZOLAM. [Concomitant]
     Active Substance: ALPRAZOLAM
  3. LAMOTRIGIN [Concomitant]
     Active Substance: LAMOTRIGINE
  4. LITAREX [Suspect]
     Active Substance: LITHIUM CITRATE
     Indication: DEPRESSION
     Dosage: 12 MILLIMOL DAILY;
     Route: 048

REACTIONS (7)
  - Chronic kidney disease [Not Recovered/Not Resolved]
  - Mental disorder [Unknown]
  - Fall [Unknown]
  - Blood creatinine increased [Unknown]
  - Laceration [Unknown]
  - Nephrogenic diabetes insipidus [Not Recovered/Not Resolved]
  - Hypercalcaemia [Unknown]
